FAERS Safety Report 10429248 (Version 1)
Quarter: 2014Q3

REPORT INFORMATION
  Report Type: Spontaneous
  Country: US (occurrence: US)
  Receive Date: 20140904
  Receipt Date: 20140904
  Transmission Date: 20150326
  Serious: Yes (Hospitalization, Other)
  Sender: FDA-Public Use
  Company Number: US-BRISTOL-MYERS SQUIBB COMPANY-21336607

PATIENT
  Age: 63 Year
  Sex: Female
  Weight: 113.83 kg

DRUGS (11)
  1. LASIX [Concomitant]
     Active Substance: FUROSEMIDE
  2. CARVEDILOL. [Concomitant]
     Active Substance: CARVEDILOL
  3. METFORMIN [Concomitant]
     Active Substance: METFORMIN HYDROCHLORIDE
  4. POTASSIUM [Concomitant]
     Active Substance: POTASSIUM
  5. BYETTA [Suspect]
     Active Substance: EXENATIDE
     Indication: TYPE 2 DIABETES MELLITUS
     Dosage: INJECTION?3-4YEARS AGO TO MAR2014(INT):RESTART ON JUN2014-ONG
     Route: 058
  6. MIRALAX [Concomitant]
     Active Substance: POLYETHYLENE GLYCOL 3350
  7. MULTIVITAMIN [Concomitant]
     Active Substance: VITAMINS
  8. PRAVACHOL [Concomitant]
     Active Substance: PRAVASTATIN SODIUM
  9. NEURONTIN [Concomitant]
     Active Substance: GABAPENTIN
  10. BACLOFEN. [Concomitant]
     Active Substance: BACLOFEN
  11. TIZANIDINE [Concomitant]
     Active Substance: TIZANIDINE

REACTIONS (5)
  - Cystitis [Unknown]
  - Peripheral swelling [Unknown]
  - Osteomyelitis [Unknown]
  - Renal failure acute [Unknown]
  - Weight decreased [Unknown]

NARRATIVE: CASE EVENT DATE: 2014
